FAERS Safety Report 4844127-9 (Version None)
Quarter: 2005Q4

REPORT INFORMATION
  Report Type: 
  Country: None (occurrence: None)
  Receive Date: 20051202
  Receipt Date: 20051122
  Transmission Date: 20060501
  Serious: Yes (Disabling)
  Sender: FDA-Public Use
  Company Number: US-MERCK-0511USA03950

PATIENT
  Age: 59 Year
  Sex: Male
  Weight: 109 kg

DRUGS (4)
  1. ALLEGRA [Concomitant]
     Route: 065
  2. VIOXX [Suspect]
     Indication: ARTHRITIS
     Route: 048
     Dates: start: 19991201, end: 20041101
  3. PREVACID [Concomitant]
     Route: 065
  4. OSTELIN [Concomitant]
     Route: 065

REACTIONS (4)
  - ANEURYSM [None]
  - ARTHROPATHY [None]
  - BACK DISORDER [None]
  - TRANSIENT ISCHAEMIC ATTACK [None]
